FAERS Safety Report 15538305 (Version 1)
Quarter: 2018Q4

REPORT INFORMATION
  Report Type: Spontaneous
  Country: GB (occurrence: GB)
  Receive Date: 20181022
  Receipt Date: 20181022
  Transmission Date: 20190205
  Serious: Yes (Other)
  Sender: FDA-Public Use
  Company Number: GB-NAPPMUNDI-GBR-2018-0060524

PATIENT
  Age: 56 Year
  Sex: Female

DRUGS (1)
  1. MORPHINE SULFATE. [Suspect]
     Active Substance: MORPHINE SULFATE
     Indication: PRODUCT USED FOR UNKNOWN INDICATION
     Dosage: UNK
     Route: 048
     Dates: start: 20180328

REACTIONS (4)
  - Respiratory rate decreased [Unknown]
  - Pruritus [Unknown]
  - Pupillary reflex impaired [Unknown]
  - Documented hypersensitivity to administered product [Unknown]

NARRATIVE: CASE EVENT DATE: 20180328
